FAERS Safety Report 25746342 (Version 2)
Quarter: 2025Q3

REPORT INFORMATION
  Report Type: Report from Study
  Country: US (occurrence: US)
  Receive Date: 20250901
  Receipt Date: 20250913
  Transmission Date: 20251021
  Serious: Yes (Other)
  Sender: AUROBINDO
  Company Number: US-MLMSERVICE-20250814-PI612354-00271-4

PATIENT
  Age: 48 Year
  Sex: Male

DRUGS (7)
  1. PREDNISONE [Suspect]
     Active Substance: PREDNISONE
     Indication: Neurosarcoidosis
     Dosage: 80 MILLIGRAM, ONCE A DAY
     Route: 065
     Dates: start: 2013
  2. PREDNISONE [Suspect]
     Active Substance: PREDNISONE
     Dosage: 60 MILLIGRAM, ONCE A DAY
     Route: 065
  3. SOLU-MEDROL [Suspect]
     Active Substance: METHYLPREDNISOLONE SODIUM SUCCINATE
     Indication: Neurosarcoidosis
     Dosage: 1 GRAM, ONCE A DAY
     Route: 065
     Dates: start: 2013
  4. AZATHIOPRINE [Concomitant]
     Active Substance: AZATHIOPRINE
     Indication: Hypothalamo-pituitary disorder
     Dosage: 100 MILLIGRAM, ONCE A DAY
     Route: 065
     Dates: start: 2013
  5. AZATHIOPRINE [Concomitant]
     Active Substance: AZATHIOPRINE
     Dosage: 200 MILLIGRAM, ONCE A DAY
     Route: 065
  6. TESTOSTERONE [Concomitant]
     Active Substance: TESTOSTERONE
     Indication: Hypothalamo-pituitary disorder
     Route: 065
     Dates: start: 2013
  7. DESMOPRESSIN [Concomitant]
     Active Substance: DESMOPRESSIN
     Indication: Hypothalamo-pituitary disorder
     Route: 065
     Dates: start: 2013

REACTIONS (1)
  - Steroid diabetes [Recovered/Resolved]
